FAERS Safety Report 6337763-4 (Version None)
Quarter: 2009Q3

REPORT INFORMATION
  Report Type: 
  Country: None (occurrence: None)
  Receive Date: 20090902
  Receipt Date: 20090821
  Transmission Date: 20100115
  Serious: Yes (Hospitalization, Other)
  Sender: FDA-Public Use
  Company Number: US-TYCO HEALTHCARE/MALLINCKRODT-T200901279

PATIENT
  Sex: Female

DRUGS (15)
  1. OPTIMARK [Suspect]
     Indication: NUCLEAR MAGNETIC RESONANCE IMAGING
     Dosage: UNK
     Dates: start: 20060802, end: 20060802
  2. OPTIMARK [Suspect]
     Indication: ANGIOGRAM
     Dosage: 20 ML, SINGLE
     Dates: start: 20060805, end: 20060805
  3. CLOPIDOGREL [Concomitant]
     Dosage: 75 MG, QD
  4. NEPHROCAPS [Concomitant]
     Dosage: ONE DAILY
  5. CALCIUM ACETATE [Concomitant]
     Dosage: WITH MEALS
  6. DOXERCALCIFEROL [Concomitant]
     Dosage: 0.5 UG, 3X A WEEK
  7. EPOGEN [Concomitant]
     Dosage: UNK
  8. S-OMEPRAZOLE [Concomitant]
     Dosage: 40 MG, QD
  9. IRON [Concomitant]
     Dosage: 150 UNK, QD
  10. GABAPENTIN [Concomitant]
     Dosage: 100 MG, QD
  11. LANTHANUM CARBONATE [Concomitant]
     Dosage: 1 G, TID WITH MEALS
  12. LISINOPRIL [Concomitant]
     Dosage: 20 MG, QD
  13. METOCLOPRAMIDE [Concomitant]
     Dosage: 5 MG, AC AND HS
  14. METOPROLOL SUCCINATE [Concomitant]
     Dosage: 100 MG, QD
  15. NOVOLOG [Concomitant]
     Dosage: VIA INSULIN PUMP 24 UNITS DAILY

REACTIONS (11)
  - ABDOMINAL PAIN [None]
  - ASCITES [None]
  - BRADYCARDIA [None]
  - CEREBROVASCULAR ACCIDENT [None]
  - IMPAIRED GASTRIC EMPTYING [None]
  - NAUSEA [None]
  - NEPHROGENIC SYSTEMIC FIBROSIS [None]
  - OFF LABEL USE [None]
  - PERICARDIAL EFFUSION [None]
  - PLEURAL EFFUSION [None]
  - RENAL TRANSPLANT [None]
